FAERS Safety Report 7568143-1 (Version None)
Quarter: 2011Q2

REPORT INFORMATION
  Report Type: 
  Country: None (occurrence: None)
  Receive Date: 20110623
  Receipt Date: 20110615
  Transmission Date: 20111010
  Serious: Yes (Life-Threatening)
  Sender: FDA-Public Use
  Company Number: DZ-NOVOPROD-328285

PATIENT
  Age: 60 Year
  Sex: Female
  Weight: 85 kg

DRUGS (4)
  1. LEVEMIR [Suspect]
     Indication: TYPE 2 DIABETES MELLITUS
     Dosage: 30 IU, QD
  2. GLUCOPHAGE [Concomitant]
     Dosage: 850 UNK, TID
     Route: 048
  3. ACTOS [Concomitant]
     Dosage: 30 MG, QD
     Route: 048
  4. AMARYL [Concomitant]
     Dosage: 6 MG, QD
     Route: 048

REACTIONS (1)
  - HYPERSENSITIVITY [None]
